FAERS Safety Report 12615370 (Version 1)
Quarter: 2016Q3

REPORT INFORMATION
  Report Type: Spontaneous
  Country: US (occurrence: US)
  Receive Date: 20160802
  Receipt Date: 20160802
  Transmission Date: 20161109
  Serious: Yes (Hospitalization)
  Sender: FDA-Public Use
  Company Number: US-SMITH AND NEPHEW, INC-2016SMT00613

PATIENT
  Age: 53 Year
  Sex: Male
  Weight: 95.24 kg

DRUGS (5)
  1. UNSPECIFIED INSULIN [Concomitant]
     Active Substance: INSULIN NOS
     Dosage: 35 UNITS, 2X/DAY
  2. LASIX [Concomitant]
     Active Substance: FUROSEMIDE
  3. REGRANEX [Suspect]
     Active Substance: BECAPLERMIN
     Indication: WOUND
     Dosage: UNK, 1X/DAY
     Route: 061
     Dates: start: 20160620, end: 20160708
  4. CARVEDILOL. [Concomitant]
     Active Substance: CARVEDILOL
  5. LOSARTAN. [Concomitant]
     Active Substance: LOSARTAN

REACTIONS (2)
  - Wound secretion [Unknown]
  - Wound infection [Unknown]

NARRATIVE: CASE EVENT DATE: 2016
